FAERS Safety Report 4874566-1 (Version None)
Quarter: 2006Q1

REPORT INFORMATION
  Report Type: 
  Country: None (occurrence: None)
  Receive Date: 20060106
  Receipt Date: 20051108
  Transmission Date: 20060701
  Serious: Yes (Hospitalization)
  Sender: FDA-Public Use
  Company Number: JP-ABBOTT-05P-087-0316755-00

PATIENT
  Sex: Male

DRUGS (4)
  1. LIPIDIL [Suspect]
     Indication: HYPERLIPIDAEMIA
     Route: 048
     Dates: start: 20050706, end: 20050720
  2. LIPIDIL [Suspect]
     Route: 048
     Dates: start: 20050727, end: 20050903
  3. DICLOFENAC SODIUM [Concomitant]
     Indication: DRUG USE FOR UNKNOWN INDICATION
     Dates: start: 20050720, end: 20050726
  4. MARZULENE S [Concomitant]
     Indication: DRUG USE FOR UNKNOWN INDICATION
     Dates: start: 20050720, end: 20050725

REACTIONS (6)
  - BILIARY TRACT INFECTION [None]
  - CHOLANGITIS [None]
  - CHOLELITHIASIS [None]
  - FAECES PALE [None]
  - GOUT [None]
  - HEPATITIS [None]
